FAERS Safety Report 11507373 (Version 3)
Quarter: 2015Q4

REPORT INFORMATION
  Report Type: Spontaneous
  Country: US (occurrence: US)
  Receive Date: 20150915
  Receipt Date: 20151026
  Transmission Date: 20160304
  Serious: Yes (Other)
  Sender: FDA-Public Use
  Company Number: US-PFIZER INC-2015309045

PATIENT
  Age: 51 Year
  Sex: Female

DRUGS (4)
  1. PRISTIQ EXTENDED RELEASE [Suspect]
     Active Substance: DESVENLAFAXINE SUCCINATE
     Dosage: 50 MG, 2X/DAY
     Route: 048
  2. RISPERIDONE. [Concomitant]
     Active Substance: RISPERIDONE
     Dosage: 0.5 MG, 1X/DAY (1MG 1/2 HS)
  3. PRISTIQ EXTENDED RELEASE [Suspect]
     Active Substance: DESVENLAFAXINE SUCCINATE
     Dosage: 25 MG, 1X/DAY (50MG 1/2 AM)
     Route: 048
  4. THORAZINE [Concomitant]
     Active Substance: CHLORPROMAZINE
     Dosage: 50 MG, 1X/DAY (100 MG, 1/2 HS)

REACTIONS (1)
  - Psychiatric symptom [Unknown]
